FAERS Safety Report 8550400-3 (Version None)
Quarter: 2012Q3

REPORT INFORMATION
  Report Type: 
  Country: None (occurrence: None)
  Receive Date: 20120730
  Receipt Date: 20120723
  Transmission Date: 20120928
  Serious: No
  Sender: FDA-Public Use
  Company Number: US-B.I. PHARMACEUTICALS,INC./RIDGEFIELD-2012-BP-16365BP

PATIENT
  Sex: Male

DRUGS (5)
  1. FLUOXETINE HCL [Concomitant]
     Indication: DEPRESSION
     Dosage: 20 MG
     Route: 048
  2. MIRAPEX [Suspect]
     Dosage: 0.5 MG
     Route: 048
     Dates: start: 20120716
  3. MIRAPEX [Suspect]
     Indication: PARKINSON'S DISEASE
     Dosage: 0.375 MG
     Route: 048
     Dates: end: 20120701
  4. CARBIDOPA AND LEVODOPA [Concomitant]
     Indication: PARKINSON'S DISEASE
     Route: 048
  5. ATENOLOL [Concomitant]
     Indication: HYPERTENSION
     Dosage: 100 MG
     Route: 048

REACTIONS (3)
  - FEELING ABNORMAL [None]
  - SPEECH DISORDER [None]
  - FATIGUE [None]
